FAERS Safety Report 10713496 (Version 3)
Quarter: 2015Q1

REPORT INFORMATION
  Report Type: Report from Study
  Country: BR (occurrence: BR)
  Receive Date: 20150115
  Receipt Date: 20150216
  Transmission Date: 20150721
  Serious: Yes (Other)
  Sender: FDA-Public Use
  Company Number: BR-ABBVIE-15K-020-1332085-00

PATIENT
  Sex: Female
  Weight: 63 kg

DRUGS (8)
  1. COMPLEX B [Concomitant]
     Active Substance: CALCIUM PANTOTHENATE\CYANOCOBALAMIN\NIACINAMIDE\PYRIDOXINE HYDROCHLORIDE\RIBOFLAVIN\THIAMINE MONONITRATE
     Indication: VITAMIN SUPPLEMENTATION
  2. FOLIN [Concomitant]
     Indication: VITAMIN SUPPLEMENTATION
  3. VITAMIN D [Concomitant]
     Active Substance: CHOLECALCIFEROL
     Indication: PRODUCT USED FOR UNKNOWN INDICATION
     Dates: start: 201501
  4. SALICETIL [Concomitant]
     Indication: PRODUCT USED FOR UNKNOWN INDICATION
  5. HUMIRA [Suspect]
     Active Substance: ADALIMUMAB
     Indication: RHEUMATOID ARTHRITIS
     Route: 058
  6. HUMIRA [Suspect]
     Active Substance: ADALIMUMAB
     Route: 058
     Dates: start: 20150130
  7. TRAMADOL/FAMOTIDINE/PREDNISONE [Concomitant]
     Indication: PAIN
     Dosage: TRAMADOL 50 MG + PREDNISONE 2.5 MG + FAMOTIDINE 30 MG
     Route: 048
  8. COMPLEX B [Concomitant]
     Active Substance: CALCIUM PANTOTHENATE\CYANOCOBALAMIN\NIACINAMIDE\PYRIDOXINE HYDROCHLORIDE\RIBOFLAVIN\THIAMINE MONONITRATE
     Indication: IMMUNE ENHANCEMENT THERAPY
     Route: 048

REACTIONS (13)
  - Decreased appetite [Not Recovered/Not Resolved]
  - Lip pain [Recovered/Resolved]
  - Aphthous stomatitis [Recovered/Resolved]
  - Immunodeficiency [Recovered/Resolved]
  - Alopecia [Not Recovered/Not Resolved]
  - Pain in extremity [Unknown]
  - Mouth ulceration [Recovered/Resolved]
  - Ulcer [Recovered/Resolved]
  - Anaemia [Unknown]
  - Lip haemorrhage [Recovered/Resolved]
  - Oesophageal ulcer [Recovered/Resolved]
  - Intestinal ulcer [Recovered/Resolved]
  - Haematochezia [Recovered/Resolved]

NARRATIVE: CASE EVENT DATE: 2014
